FAERS Safety Report 9999035 (Version 1)
Quarter: 2014Q1

REPORT INFORMATION
  Report Type: Spontaneous
  Country: IN (occurrence: None)
  Receive Date: 20140311
  Receipt Date: 20140311
  Transmission Date: 20141002
  Serious: Yes (Hospitalization)
  Sender: FDA-Public Use
  Company Number: None

PATIENT
  Age: 45 Year
  Sex: Male
  Weight: 79 kg

DRUGS (1)
  1. PHENOBARBITONE [Suspect]
     Indication: PARTIAL SEIZURES
     Route: 048
     Dates: start: 20140307, end: 20140307

REACTIONS (1)
  - Dermatitis exfoliative [None]
